FAERS Safety Report 10404668 (Version 2)
Quarter: 2015Q1

REPORT INFORMATION
  Report Type: Spontaneous
  Country: US (occurrence: US)
  Receive Date: 20140824
  Receipt Date: 20150120
  Transmission Date: 20150720
  Serious: Yes (Hospitalization, Other)
  Sender: FDA-Public Use
  Company Number: US-009507513-1408USA009643

PATIENT
  Sex: Female
  Weight: 117.91 kg

DRUGS (1)
  1. NUVARING [Suspect]
     Active Substance: ETHINYL ESTRADIOL\ETONOGESTREL
     Dosage: 3 WEEKS IN AND REMOVE FOR 1 WEEK
     Route: 067
     Dates: start: 20100608, end: 20121125

REACTIONS (6)
  - Sinusitis [Unknown]
  - Diabetes mellitus [Unknown]
  - Upper respiratory tract infection [Unknown]
  - Heparin-induced thrombocytopenia [Unknown]
  - Pulmonary embolism [Unknown]
  - Acute respiratory failure [Unknown]

NARRATIVE: CASE EVENT DATE: 201212
